FAERS Safety Report 18658628 (Version 1)
Quarter: 2020Q4

REPORT INFORMATION
  Report Type: Spontaneous
  Country: SE (occurrence: SE)
  Receive Date: 20201224
  Receipt Date: 20201224
  Transmission Date: 20210114
  Serious: Yes (Other)
  Sender: FDA-Public Use
  Company Number: SE-SA-2020SA362297

PATIENT

DRUGS (2)
  1. IRINOTECAN [Suspect]
     Active Substance: IRINOTECAN
     Indication: TESTIS CANCER
     Dosage: 117 MG
     Route: 042
     Dates: start: 20190626, end: 20191016
  2. OXALIPLATIN. [Suspect]
     Active Substance: OXALIPLATIN
     Indication: TESTIS CANCER
     Dosage: 166 MG
     Route: 042
     Dates: start: 20190626, end: 20191113

REACTIONS (1)
  - Hepatic enzyme increased [Recovered/Resolved]

NARRATIVE: CASE EVENT DATE: 20190812
